FAERS Safety Report 12885660 (Version 1)
Quarter: 2016Q4

REPORT INFORMATION
  Report Type: Spontaneous
  Country: US (occurrence: US)
  Receive Date: 20161026
  Receipt Date: 20161026
  Transmission Date: 20170207
  Serious: No
  Sender: FDA-Public Use
  Company Number: US-BAYER-2016-206179

PATIENT
  Age: 79 Year
  Sex: Female
  Weight: 48.53 kg

DRUGS (2)
  1. CLARITIN [Suspect]
     Active Substance: LORATADINE
     Indication: RASH
     Dosage: 1 DF, ONCE
     Route: 048
     Dates: start: 20161025, end: 20161025
  2. CLARITIN [Suspect]
     Active Substance: LORATADINE
     Indication: THERAPEUTIC SKIN CARE TOPICAL

REACTIONS (1)
  - Off label use [Not Recovered/Not Resolved]

NARRATIVE: CASE EVENT DATE: 20161025
